FAERS Safety Report 17636495 (Version 1)
Quarter: 2020Q2

REPORT INFORMATION
  Report Type: Spontaneous
  Country: US (occurrence: US)
  Receive Date: 20200404
  Receipt Date: 20200404
  Transmission Date: 20200713
  Serious: Yes (Disabling)
  Sender: FDA-Public Use
  Company Number: None

PATIENT
  Age: 40 Year
  Sex: Female
  Weight: 68.4 kg

DRUGS (3)
  1. WIXELA 250 MG [Concomitant]
  2. ADVIL 200 MG [Concomitant]
  3. BUPROPION XL [Suspect]
     Active Substance: BUPROPION HYDROCHLORIDE
     Indication: DEPRESSION
     Dosage: ?          QUANTITY:1 TABLET(S);?
     Route: 048

REACTIONS (5)
  - Feeling abnormal [None]
  - Feelings of worthlessness [None]
  - Anxiety [None]
  - Panic attack [None]
  - Depressed mood [None]

NARRATIVE: CASE EVENT DATE: 20200403
